FAERS Safety Report 8153630-8 (Version None)
Quarter: 2012Q1

REPORT INFORMATION
  Report Type: 
  Country: None (occurrence: None)
  Receive Date: 20120221
  Receipt Date: 20120206
  Transmission Date: 20120608
  Serious: Yes (Hospitalization, Other)
  Sender: FDA-Public Use
  Company Number: IN-WATSON-2012-02453

PATIENT
  Age: 21 Year
  Sex: Male

DRUGS (1)
  1. BACLOFEN [Suspect]
     Indication: PRODUCT USED FOR UNKNOWN INDICATION
     Dosage: 10 TABLETS OF EXTENDED RELEASE BACLOFEN 20MG
     Route: 048

REACTIONS (7)
  - TACHYPNOEA [None]
  - CREPITATIONS [None]
  - COMA [None]
  - MYDRIASIS [None]
  - OVERDOSE [None]
  - HYPOXIA [None]
  - EXTENSOR PLANTAR RESPONSE [None]
